FAERS Safety Report 5143165-9 (Version None)
Quarter: 2006Q4

REPORT INFORMATION
  Report Type: 
  Country: None (occurrence: None)
  Receive Date: 20061030
  Receipt Date: 20061017
  Transmission Date: 20070319
  Serious: Yes (Hospitalization)
  Sender: FDA-Public Use
  Company Number: 2006127366

PATIENT
  Age: 62 Year
  Sex: Female
  Weight: 56 kg

DRUGS (22)
  1. SUTENT [Suspect]
     Indication: RENAL CELL CARCINOMA STAGE UNSPECIFIED
     Dosage: (37.5 MG, 1 IN 1 D), ORAL
     Route: 048
     Dates: start: 20060926
  2. LOPERAMIDE [Concomitant]
  3. DOMPERIDONE (DOMPERIDONE) [Concomitant]
  4. SOLUPRED (PREDNISOLONE SODIUM SULFOBENZOATE) [Concomitant]
  5. CORDARONE [Concomitant]
  6. MORPHINE [Concomitant]
  7. MORPHINE SULFATE [Concomitant]
  8. DUPHALAC [Concomitant]
  9. EDUCTYL (POTASSIUM BITARTRATE, SODIUM BICARBONATE) [Concomitant]
  10. DURAGESIC-100 [Concomitant]
  11. XANAX (ALPRAZOLE) [Concomitant]
  12. VOGALENE (METOPIMAZINE) [Concomitant]
  13. LOPERAMIDE HCL [Concomitant]
  14. DIOSMECTITE (ALUMINIUM MAGTNESIUM SILICATE) [Concomitant]
  15. TIORFAN (ACETORPHAN) [Concomitant]
  16. ALLPURINOL (ALLOPURINOL) [Concomitant]
  17. EFERALGAN CODEINE (CODEINE PHOSPHATE, PARACETAMOL) [Concomitant]
  18. PRIMPERAN TAB [Concomitant]
  19. PAROXETINE HYDROCHLORIDE [Concomitant]
  20. ALODONT (CETYLPYRIDINIUM CHLORIDE, CHLOROBUTANOL, EUGENOL, VERATROL) [Concomitant]
  21. BIRODOGYL (METRONIDAZOLE, SPIRAMYCIN) [Concomitant]
  22. RHINOFLUIMUCIL (ACETYLCYSTEINE, BENZALKONIUM CHLORIDE, TUAMINOHEPTANE) [Concomitant]

REACTIONS (1)
  - MALAISE [None]
